FAERS Safety Report 4589766-8 (Version None)
Quarter: 2005Q1

REPORT INFORMATION
  Report Type: 
  Country: None (occurrence: None)
  Receive Date: 20050223
  Receipt Date: 20050214
  Transmission Date: 20050727
  Serious: Yes (Life-Threatening, Hospitalization)
  Sender: FDA-Public Use
  Company Number: GB-BRISTOL-MYERS SQUIBB COMPANY-12864757

PATIENT
  Age: 53 Year
  Sex: Female

DRUGS (4)
  1. METFORMIN HCL [Suspect]
     Indication: DIABETES MELLITUS
     Route: 048
     Dates: start: 19850101, end: 20050110
  2. INDOMETHACIN [Suspect]
     Indication: RHEUMATOID ARTHRITIS
     Route: 048
     Dates: start: 20020101, end: 20050110
  3. ENALAPRIL [Suspect]
     Route: 048
     Dates: start: 20040101, end: 20050110
  4. MIXTARD HUMAN 70/30 [Concomitant]
     Indication: DIABETES MELLITUS
     Route: 058
     Dates: start: 19970101

REACTIONS (1)
  - RENAL FAILURE ACUTE [None]
